FAERS Safety Report 9846463 (Version 1)
Quarter: 2013Q4

REPORT INFORMATION
  Report Type: Spontaneous
  Country: US (occurrence: None)
  Receive Date: 20131223
  Receipt Date: 20131223
  Transmission Date: 20140711
  Serious: No
  Sender: FDA-Public Use
  Company Number: CABO-13003367

PATIENT
  Age: 68 Year
  Sex: Female
  Weight: 76.6 kg

DRUGS (1)
  1. COMETRIQ (CABOZANTINIB) CAPSULE [Suspect]
     Indication: THYROID CANCER
     Route: 048
     Dates: start: 20130919, end: 20131017

REACTIONS (9)
  - Vertigo [None]
  - Somnolence [None]
  - Vision blurred [None]
  - Glossodynia [None]
  - Diarrhoea [None]
  - Flatulence [None]
  - Nausea [None]
  - Oropharyngeal pain [None]
  - Fatigue [None]
